FAERS Safety Report 9001633 (Version 2)
Quarter: 2013Q1

REPORT INFORMATION
  Report Type: Spontaneous
  Country: JP (occurrence: JP)
  Receive Date: 20130107
  Receipt Date: 20130122
  Transmission Date: 20140127
  Serious: Yes (Other)
  Sender: FDA-Public Use
  Company Number: JP-PFIZER INC-2013004083

PATIENT
  Age: 7 Decade
  Sex: Male

DRUGS (5)
  1. CELECOX [Suspect]
     Indication: PROCEDURAL PAIN
     Dosage: 400 MG, DAILY
     Route: 048
     Dates: start: 20121223, end: 20121226
  2. VOLTAREN [Concomitant]
     Dosage: UNK
  3. GLOVENIN [Concomitant]
     Dosage: UNK
  4. FLUMARIN [Concomitant]
     Dosage: UNK
  5. BFLUID [Concomitant]
     Dosage: UNK

REACTIONS (1)
  - Liver disorder [Unknown]
